FAERS Safety Report 23278229 (Version 1)
Quarter: 2023Q4

REPORT INFORMATION
  Report Type: Spontaneous
  Country: US (occurrence: US)
  Receive Date: 20231208
  Receipt Date: 20231208
  Transmission Date: 20240110
  Serious: No
  Sender: FDA-Public Use
  Company Number: US-BRISTOL-MYERS SQUIBB COMPANY-2023-176483

PATIENT
  Age: 71 Year
  Sex: Female
  Weight: 74.84 kg

DRUGS (1)
  1. POMALYST [Suspect]
     Active Substance: POMALIDOMIDE
     Indication: Plasma cell myeloma
     Dosage: FREQUENCY: DAILY FOR 21 DAYS
     Route: 048
     Dates: start: 20231120

REACTIONS (4)
  - Nasal congestion [Unknown]
  - Respiratory tract congestion [Unknown]
  - Fatigue [Unknown]
  - Constipation [Unknown]
